FAERS Safety Report 7000451-5 (Version None)
Quarter: 2010Q3

REPORT INFORMATION
  Report Type: 
  Country: None (occurrence: None)
  Receive Date: 20100920
  Receipt Date: 20090810
  Transmission Date: 20110219
  Serious: No
  Sender: FDA-Public Use
  Company Number: US-ASTRAZENECA-2009SE07482

PATIENT
  Sex: Female

DRUGS (2)
  1. SEROQUEL XR [Suspect]
     Route: 048
  2. DUPROPION [Concomitant]

REACTIONS (4)
  - AGGRESSION [None]
  - AMBLYOPIA [None]
  - FATIGUE [None]
  - HYPERSOMNIA [None]
